FAERS Safety Report 8216505-1 (Version None)
Quarter: 2012Q1

REPORT INFORMATION
  Report Type: 
  Country: None (occurrence: None)
  Receive Date: 20120316
  Receipt Date: 20120307
  Transmission Date: 20120608
  Serious: Yes (Other)
  Sender: FDA-Public Use
  Company Number: US-PERRIGO-12US002037

PATIENT
  Sex: Female
  Weight: 63.492 kg

DRUGS (2)
  1. PSEUDEOPHEDRINE HCL [Suspect]
     Indication: NASOPHARYNGITIS
     Dosage: 1 TABLET, ONCE
     Route: 048
     Dates: start: 20120306, end: 20120306
  2. PSEUDEOPHEDRINE HCL [Suspect]
     Dosage: UNK
     Route: 065
     Dates: start: 20110301, end: 20110301

REACTIONS (3)
  - DIZZINESS [None]
  - FEELING ABNORMAL [None]
  - VISUAL IMPAIRMENT [None]
